FAERS Safety Report 5753134-3 (Version None)
Quarter: 2008Q2

REPORT INFORMATION
  Report Type: 
  Country: None (occurrence: None)
  Receive Date: 20080530
  Receipt Date: 20080519
  Transmission Date: 20081010
  Serious: Yes (Life-Threatening, Disabling)
  Sender: FDA-Public Use
  Company Number: JP-JNJFOC-20080406150

PATIENT
  Sex: Male

DRUGS (9)
  1. FINIBAX [Suspect]
     Route: 041
  2. FINIBAX [Suspect]
     Route: 041
  3. FINIBAX [Suspect]
     Indication: PERITONITIS
     Route: 041
  4. SOLDEM 1 [Concomitant]
     Route: 041
  5. SALINHES [Concomitant]
     Indication: PERITONITIS
     Route: 041
  6. MEYLON [Concomitant]
     Indication: PERITONITIS
     Route: 041
  7. TAKEPRON [Concomitant]
     Route: 042
  8. VENOGLOBULIN [Concomitant]
     Route: 041
  9. MORPHINE HCL ELIXIR [Concomitant]
     Route: 041

REACTIONS (4)
  - ALANINE AMINOTRANSFERASE INCREASED [None]
  - ASPARTATE AMINOTRANSFERASE INCREASED [None]
  - BLOOD BILIRUBIN INCREASED [None]
  - PLATELET COUNT DECREASED [None]
